FAERS Safety Report 9893872 (Version 1)
Quarter: 2014Q1

REPORT INFORMATION
  Report Type: Spontaneous
  Country: IT (occurrence: IT)
  Receive Date: 20140213
  Receipt Date: 20140213
  Transmission Date: 20141002
  Serious: Yes (Hospitalization)
  Sender: FDA-Public Use
  Company Number: IT-TEVA-461837ISR

PATIENT
  Age: 57 Year
  Sex: Female

DRUGS (2)
  1. CLARITROMICINA [Suspect]
     Indication: COUGH
     Dosage: 500 MILLIGRAM DAILY;
     Route: 048
     Dates: start: 20140128, end: 20140130
  2. CLARITROMICINA TEVA 250 MG [Suspect]
     Indication: OROPHARYNGEAL PAIN

REACTIONS (5)
  - Confusional state [Recovered/Resolved]
  - Hyperhidrosis [Recovered/Resolved]
  - Paraesthesia [Recovered/Resolved]
  - Hypoaesthesia [Recovered/Resolved]
  - Product substitution issue [Unknown]
